FAERS Safety Report 6913411-7 (Version None)
Quarter: 2010Q3

REPORT INFORMATION
  Report Type: 
  Country: None (occurrence: None)
  Receive Date: 20100809
  Receipt Date: 20100728
  Transmission Date: 20110219
  Serious: Yes (Death, Life-Threatening, Hospitalization)
  Sender: FDA-Public Use
  Company Number: CH-JNJFOC-20090300584

PATIENT
  Age: 34 Year
  Sex: Male

DRUGS (23)
  1. REMICADE [Suspect]
     Indication: COLITIS ULCERATIVE
     Route: 042
  2. SPIRICORT [Suspect]
     Indication: COLITIS ULCERATIVE
     Route: 048
  3. BACTRIM [Suspect]
     Indication: HIV INFECTION
     Route: 048
  4. ISONIAZID [Suspect]
     Indication: DISSEMINATED TUBERCULOSIS
  5. COTRIM [Suspect]
     Indication: DISSEMINATED TUBERCULOSIS
  6. COMBIVIR [Concomitant]
     Indication: HIV INFECTION
     Route: 048
  7. INVIRASE [Concomitant]
     Indication: HIV INFECTION
     Route: 048
  8. NORVIR [Concomitant]
     Indication: HIV INFECTION
     Route: 048
  9. NEXIUM [Concomitant]
  10. MUTAFLOR [Concomitant]
  11. FOLVITE [Concomitant]
  12. FERROSANOL [Concomitant]
  13. PERENTEROL [Concomitant]
  14. FRAXIPARINE [Concomitant]
  15. NOVORAPID [Concomitant]
  16. PYRAZINAMIDE [Concomitant]
  17. ETHAMBUTOL HYDROCHLORIDE [Concomitant]
  18. RIFABUTIN [Concomitant]
  19. CIPROXIN [Concomitant]
  20. FOSCARNET [Concomitant]
  21. GENTAMICIN [Concomitant]
  22. RIFAMPICIN [Concomitant]
  23. IMIPENEM [Concomitant]

REACTIONS (12)
  - ANAEMIA [None]
  - CYTOMEGALOVIRUS INFECTION [None]
  - DISSEMINATED TUBERCULOSIS [None]
  - GENERAL PHYSICAL HEALTH DETERIORATION [None]
  - LEGIONELLA TEST POSITIVE [None]
  - LYMPHOPENIA [None]
  - NEUTROPENIA [None]
  - PANCREATITIS NECROTISING [None]
  - PLEURAL EFFUSION [None]
  - PNEUMONIA LEGIONELLA [None]
  - PULMONARY EMBOLISM [None]
  - THROMBOCYTOPENIA [None]
